FAERS Safety Report 18264764 (Version 1)
Quarter: 2020Q3

REPORT INFORMATION
  Report Type: Spontaneous
  Country: CA (occurrence: CA)
  Receive Date: 20200915
  Receipt Date: 20200915
  Transmission Date: 20201103
  Serious: Yes (Other)
  Sender: FDA-Public Use
  Company Number: CA-ACCORD-200516

PATIENT
  Age: 61 Year
  Sex: Male

DRUGS (7)
  1. SALOFALK [Concomitant]
     Dosage: NOT SPECIFIED
  2. METHOTREXATE. [Suspect]
     Active Substance: METHOTREXATE
     Indication: PRODUCT USED FOR UNKNOWN INDICATION
     Dosage: 2 EVERY 1 DAYS
     Route: 065
  3. XELJANZ [Concomitant]
     Active Substance: TOFACITINIB CITRATE
     Indication: COLITIS ULCERATIVE
     Dosage: 2 EVERY 1 DAYS
     Route: 048
  4. HYDROCORTISONE. [Concomitant]
     Active Substance: HYDROCORTISONE
  5. VEDOLIZUMAB [Concomitant]
     Active Substance: VEDOLIZUMAB
  6. CORTENEMA [Concomitant]
     Active Substance: HYDROCORTISONE
     Dosage: ENEMA
  7. MEZAVANT [Concomitant]
     Active Substance: MESALAMINE
     Dosage: TABLET (DELAYED AND EXTENDED RELEASE)

REACTIONS (4)
  - Burning sensation [Unknown]
  - Diarrhoea [Unknown]
  - Haematochezia [Unknown]
  - Discomfort [Unknown]
